FAERS Safety Report 23445720 (Version 1)
Quarter: 2024Q1

REPORT INFORMATION
  Report Type: Spontaneous
  Country: US (occurrence: US)
  Receive Date: 20240126
  Receipt Date: 20240126
  Transmission Date: 20240410
  Serious: Yes (Life-Threatening, Hospitalization)
  Sender: FDA-Public Use
  Company Number: US-EPICPHARMA-US-2024EPCLIT00162

PATIENT
  Age: 71 Year
  Sex: Female

DRUGS (2)
  1. TRIAMCINOLONE ACETONIDE [Suspect]
     Active Substance: TRIAMCINOLONE ACETONIDE
     Indication: Oesophageal stenosis
     Route: 026
  2. AZATHIOPRINE [Concomitant]
     Active Substance: AZATHIOPRINE
     Route: 065

REACTIONS (2)
  - Abscess neck [Recovered/Resolved]
  - Product use in unapproved indication [Unknown]
